FAERS Safety Report 4642711-9 (Version None)
Quarter: 2005Q3

REPORT INFORMATION
  Report Type: 
  Country: None (occurrence: None)
  Receive Date: 20050422
  Receipt Date: 20050414
  Transmission Date: 20060218
  Serious: Yes (Death, Hospitalization, Other)
  Sender: FDA-Public Use
  Company Number: CA-JNJFOC-20040901129

PATIENT
  Sex: Female
  Weight: 56.5 kg

DRUGS (4)
  1. DURAGESIC-100 [Suspect]
     Route: 062
  2. MOS [Suspect]
     Indication: PAIN
     Dosage: 20-30 MG
     Route: 049
  3. XYOTAX [Suspect]
     Indication: NON-SMALL CELL LUNG CANCER
     Route: 042
  4. CARBOPLATIN [Suspect]
     Indication: NON-SMALL CELL LUNG CANCER
     Dosage: AUC 6 (Q3WKS)
     Route: 042

REACTIONS (15)
  - ASTHENIA [None]
  - CEREBRAL ISCHAEMIA [None]
  - CLOSTRIDIUM COLITIS [None]
  - CLOSTRIDIUM DIFFICILE TOXIN TEST POSITIVE [None]
  - CONFUSIONAL STATE [None]
  - DELIRIUM [None]
  - DIARRHOEA [None]
  - DYSPNOEA [None]
  - INADEQUATE DIET [None]
  - MALIGNANT NEOPLASM PROGRESSION [None]
  - NAUSEA [None]
  - NON-SMALL CELL LUNG CANCER [None]
  - PULMONARY EMBOLISM [None]
  - VOMITING [None]
  - WEIGHT DECREASED [None]
